FAERS Safety Report 7531069-3 (Version None)
Quarter: 2011Q2

REPORT INFORMATION
  Report Type: 
  Country: None (occurrence: None)
  Receive Date: 20110531
  Receipt Date: 20110516
  Transmission Date: 20111010
  Serious: Yes (Life-Threatening, Hospitalization, Other)
  Sender: FDA-Public Use
  Company Number: 2011MA005969

PATIENT
  Age: 33 Year
  Sex: Female

DRUGS (1)
  1. VERAPAMIL HCL [Suspect]
     Dosage: 4000 MG, 1X,

REACTIONS (13)
  - SOMNOLENCE [None]
  - BRADYCARDIA [None]
  - HYPERGLYCAEMIA [None]
  - SUICIDAL IDEATION [None]
  - OVERDOSE [None]
  - METABOLIC ACIDOSIS [None]
  - LEUKOCYTOSIS [None]
  - CARDIOGENIC SHOCK [None]
  - ATRIOVENTRICULAR BLOCK COMPLETE [None]
  - ATRIOVENTRICULAR BLOCK FIRST DEGREE [None]
  - CARDIAC ARREST [None]
  - TOXICITY TO VARIOUS AGENTS [None]
  - RESPIRATORY ARREST [None]
